FAERS Safety Report 20654114 (Version 1)
Quarter: 2022Q1

REPORT INFORMATION
  Report Type: Spontaneous
  Country: US (occurrence: None)
  Receive Date: 20220330
  Receipt Date: 20220330
  Transmission Date: 20220423
  Serious: No
  Sender: FDA-Public Use
  Company Number: 2022A091502

PATIENT
  Age: 28958 Day
  Sex: Female

DRUGS (1)
  1. BUDESONIDE\FORMOTEROL\GLYCOPYRRONIUM [Suspect]
     Active Substance: BUDESONIDE\FORMOTEROL\GLYCOPYRRONIUM
     Indication: Chronic obstructive pulmonary disease
     Dosage: 160MCG/9MCG/4.8MCG, 2 INHALATIONS TWICE A DAY
     Route: 055
     Dates: start: 20220211

REACTIONS (9)
  - Dyspnoea [Unknown]
  - Anger [Unknown]
  - Crying [Not Recovered/Not Resolved]
  - Cough [Not Recovered/Not Resolved]
  - Nervousness [Unknown]
  - Incorrect dose administered by device [Unknown]
  - Device malfunction [Unknown]
  - Intentional device misuse [Not Recovered/Not Resolved]
  - Drug ineffective [Unknown]

NARRATIVE: CASE EVENT DATE: 20220211
